FAERS Safety Report 17049079 (Version 1)
Quarter: 2019Q4

REPORT INFORMATION
  Report Type: Spontaneous
  Country: CZ (occurrence: CZ)
  Receive Date: 20191119
  Receipt Date: 20191119
  Transmission Date: 20200122
  Serious: Yes (Other)
  Sender: FDA-Public Use
  Company Number: CZ-US-PROVELL PHARMACEUTICALS LLC-9128162

PATIENT
  Sex: Female

DRUGS (4)
  1. CARZAP [Concomitant]
     Indication: PRODUCT USED FOR UNKNOWN INDICATION
  2. SORTIS [Concomitant]
     Active Substance: ATORVASTATIN
     Indication: PRODUCT USED FOR UNKNOWN INDICATION
  3. EUTHYROX [Suspect]
     Active Substance: LEVOTHYROXINE SODIUM
     Indication: PRODUCT USED FOR UNKNOWN INDICATION
  4. CLOPIDOGREL [Concomitant]
     Active Substance: CLOPIDOGREL BISULFATE
     Indication: ANTICOAGULANT THERAPY
     Dosage: 75

REACTIONS (2)
  - Mental disorder [Not Recovered/Not Resolved]
  - Cerebrovascular accident [Unknown]
